APPROVED DRUG PRODUCT: ESOMEPRAZOLE MAGNESIUM
Active Ingredient: ESOMEPRAZOLE MAGNESIUM
Strength: EQ 20MG BASE
Dosage Form/Route: CAPSULE, DELAYED REL PELLETS;ORAL
Application: A205606 | Product #001 | TE Code: AB
Applicant: AUROBINDO PHARMA LTD
Approved: Apr 21, 2016 | RLD: No | RS: No | Type: RX